FAERS Safety Report 6332783-8 (Version None)
Quarter: 2009Q3

REPORT INFORMATION
  Report Type: 
  Country: None (occurrence: None)
  Receive Date: 20090828
  Receipt Date: 20090820
  Transmission Date: 20100115
  Serious: Yes (Hospitalization, Other)
  Sender: FDA-Public Use
  Company Number: B0589434A

PATIENT
  Sex: Female

DRUGS (6)
  1. AUGMENTIN '125' [Suspect]
     Indication: PROPHYLAXIS
     Dosage: 3G PER DAY
     Route: 042
     Dates: start: 20090730, end: 20090730
  2. INEXIUM [Concomitant]
     Indication: DRUG USE FOR UNKNOWN INDICATION
     Dosage: 40MG PER DAY
     Route: 065
  3. FOLIC ACID [Concomitant]
     Indication: DRUG USE FOR UNKNOWN INDICATION
     Dosage: 5MG THREE TIMES PER DAY
     Route: 065
  4. CORTANCYL [Concomitant]
     Indication: DRUG USE FOR UNKNOWN INDICATION
     Dosage: 5MG PER DAY
     Route: 065
  5. STILNOX [Concomitant]
     Indication: DRUG USE FOR UNKNOWN INDICATION
     Dosage: 1UNIT PER DAY
     Route: 065
  6. FUMAFER [Concomitant]
     Indication: DRUG USE FOR UNKNOWN INDICATION
     Dosage: 2UNIT PER DAY
     Route: 065

REACTIONS (4)
  - ERYTHEMA [None]
  - PRURITUS [None]
  - PYREXIA [None]
  - RASH SCARLATINIFORM [None]
